FAERS Safety Report 10146840 (Version 1)
Quarter: 2014Q2

REPORT INFORMATION
  Report Type: Spontaneous
  Country: US (occurrence: None)
  Receive Date: 20140501
  Receipt Date: 20140501
  Transmission Date: 20141212
  Serious: Yes (Hospitalization)
  Sender: FDA-Public Use
  Company Number: None

PATIENT
  Age: 32 Year
  Sex: Male

DRUGS (1)
  1. SUCCINYLCHOLINE [Suspect]
     Indication: SEDATION
     Route: 042
     Dates: start: 20130528, end: 20130528

REACTIONS (5)
  - Drug ineffective [None]
  - Endotracheal intubation complication [None]
  - Incorrect product storage [None]
  - Muscle contractions involuntary [None]
  - Tracheal injury [None]
